FAERS Safety Report 8839738 (Version 1)
Quarter: 2012Q4

REPORT INFORMATION
  Report Type: Spontaneous
  Country: US (occurrence: None)
  Receive Date: 20121011
  Receipt Date: 20121011
  Transmission Date: 20130627
  Serious: Yes (Disabling, Other)
  Sender: FDA-Public Use
  Company Number: None

PATIENT
  Sex: Female
  Weight: 113.4 kg

DRUGS (1)
  1. CIPRO [Suspect]
     Indication: BLADDER INFECTION
     Dosage: 1 tablet 3 time day po
     Route: 048
     Dates: start: 20120901, end: 20120903

REACTIONS (2)
  - Pain in extremity [None]
  - Oedema peripheral [None]
